FAERS Safety Report 7619514-6 (Version None)
Quarter: 2011Q3

REPORT INFORMATION
  Report Type: 
  Country: None (occurrence: None)
  Receive Date: 20110719
  Receipt Date: 20110705
  Transmission Date: 20111222
  Serious: Yes (Other)
  Sender: FDA-Public Use
  Company Number: JP-JNJFOC-20110706163

PATIENT

DRUGS (2)
  1. DORIPENEM MONOHYDRATE [Suspect]
     Indication: ABDOMINAL ABSCESS
     Route: 041
  2. DORIPENEM MONOHYDRATE [Suspect]
     Indication: GASTROINTESTINAL PERFORATION
     Route: 041

REACTIONS (1)
  - PLATELET COUNT INCREASED [None]
